FAERS Safety Report 16897514 (Version 1)
Quarter: 2019Q4

REPORT INFORMATION
  Report Type: Report from Study
  Country: US (occurrence: US)
  Receive Date: 20191009
  Receipt Date: 20191009
  Transmission Date: 20200122
  Serious: No
  Sender: FDA-Public Use
  Company Number: US-EMD SERONO-9110509

PATIENT
  Age: 47 Year
  Sex: Female

DRUGS (1)
  1. MAVENCLAD [Suspect]
     Active Substance: CLADRIBINE
     Indication: MULTIPLE SCLEROSIS
     Dosage: 1 TABLET DAILY FOR DAYS 1 TO 4 AND 0 TABLETS ON DAY 5
     Route: 048
     Dates: start: 20190809

REACTIONS (4)
  - Vomiting [Unknown]
  - Abdominal pain [Not Recovered/Not Resolved]
  - Dysphagia [Unknown]
  - Diarrhoea [Unknown]

NARRATIVE: CASE EVENT DATE: 201908
